FAERS Safety Report 15646716 (Version 1)
Quarter: 2018Q4

REPORT INFORMATION
  Report Type: Spontaneous
  Country: JP (occurrence: JP)
  Receive Date: 20181122
  Receipt Date: 20181122
  Transmission Date: 20190205
  Serious: Yes (Other)
  Sender: FDA-Public Use
  Company Number: JP-AMGEN-JPNSP2018165992

PATIENT
  Age: 72 Year
  Sex: Female

DRUGS (1)
  1. PRALIA [Suspect]
     Active Substance: DENOSUMAB
     Indication: OSTEOPOROSIS
     Dosage: 60 MG, 8 TIMES
     Route: 058
     Dates: start: 2014, end: 2018

REACTIONS (2)
  - Foot fracture [Not Recovered/Not Resolved]
  - Breast cancer [Not Recovered/Not Resolved]
